FAERS Safety Report 6609128-9 (Version None)
Quarter: 2010Q1

REPORT INFORMATION
  Report Type: 
  Country: None (occurrence: None)
  Receive Date: 20100226
  Receipt Date: 20100226
  Transmission Date: 20100710
  Serious: Yes (Disabling)
  Sender: FDA-Public Use
  Company Number: None

PATIENT
  Sex: Female
  Weight: 86.1834 kg

DRUGS (4)
  1. PRAVACHOL [Suspect]
     Indication: BLOOD CHOLESTEROL INCREASED
     Dosage: 25 MG ONCE DAILY PO
     Route: 048
     Dates: start: 20070110, end: 20090410
  2. PRAVACHOL [Suspect]
     Indication: DIABETES MELLITUS
     Dosage: 25 MG ONCE DAILY PO
     Route: 048
     Dates: start: 20070110, end: 20090410
  3. PRAVACHOL [Concomitant]
  4. CRESTOR [Concomitant]

REACTIONS (11)
  - ASTHENIA [None]
  - GAIT DISTURBANCE [None]
  - INSOMNIA [None]
  - MUSCLE ATROPHY [None]
  - MUSCLE RUPTURE [None]
  - MUSCLE SPASMS [None]
  - MYALGIA [None]
  - PAIN [None]
  - SCREAMING [None]
  - VIRAL INFECTION [None]
  - WEIGHT DECREASED [None]
